FAERS Safety Report 21015218 (Version 1)
Quarter: 2022Q2

REPORT INFORMATION
  Report Type: Spontaneous
  Country: CN (occurrence: CN)
  Receive Date: 20220628
  Receipt Date: 20220628
  Transmission Date: 20220721
  Serious: Yes (Death, Life-Threatening, Other)
  Sender: FDA-Public Use
  Company Number: CN-AMGEN-CHNSP2022107760

PATIENT

DRUGS (2)
  1. FILGRASTIM [Suspect]
     Active Substance: FILGRASTIM
     Indication: Prophylaxis
     Dosage: UNK
     Route: 065
  2. DECITABINE [Concomitant]
     Active Substance: DECITABINE
     Dosage: UNK

REACTIONS (17)
  - Acute graft versus host disease [Fatal]
  - Thrombotic microangiopathy [Fatal]
  - Pneumonia [Fatal]
  - Neutropenia [Unknown]
  - Cytomegalovirus infection [Unknown]
  - Epstein-Barr virus infection [Unknown]
  - Obliterative bronchiolitis [Unknown]
  - Transplant failure [Unknown]
  - Pancreatitis acute [Unknown]
  - Chronic graft versus host disease [Unknown]
  - Thrombocytopenia [Unknown]
  - Anaemia [Unknown]
  - Vomiting [Unknown]
  - Gastritis [Unknown]
  - Gene mutation [Unknown]
  - Infection [Unknown]
  - Gastrointestinal disorder [Unknown]
